FAERS Safety Report 26127763 (Version 1)
Quarter: 2025Q4

REPORT INFORMATION
  Report Type: Spontaneous
  Country: EU (occurrence: EU)
  Receive Date: 20251206
  Receipt Date: 20251206
  Transmission Date: 20260118
  Serious: Yes (Other)
  Sender: ACCORD
  Company Number: None

PATIENT
  Age: 70 Year
  Sex: Female
  Weight: 53 kg

DRUGS (8)
  1. OXALIPLATIN [Suspect]
     Active Substance: OXALIPLATIN
     Indication: Metastases to peritoneum
     Dosage: STRENGTH: 5 MG/ML
     Dates: start: 20240402, end: 20240402
  2. NIVOLUMAB [Suspect]
     Active Substance: NIVOLUMAB
     Indication: Metastases to peritoneum
     Dosage: STRENGTH: 10 MG/ML
     Dates: start: 20250402, end: 20250402
  3. FLUOROURACIL [Suspect]
     Active Substance: FLUOROURACIL
     Indication: Metastases to peritoneum
     Dosage: STRENGTH: 50 MG/ML
     Dates: start: 20240402, end: 20240402
  4. OXALIPLATIN [Suspect]
     Active Substance: OXALIPLATIN
     Indication: Metastases to peritoneum
     Dosage: STRENGTH: 5 MG/ML
     Dates: start: 20240507, end: 20240507
  5. OXALIPLATIN [Suspect]
     Active Substance: OXALIPLATIN
     Indication: Metastases to peritoneum
     Dosage: STRENGTH: 5 MG/ML
     Dates: start: 20240415, end: 20240415
  6. FLUOROURACIL [Suspect]
     Active Substance: FLUOROURACIL
     Indication: Metastases to peritoneum
     Dosage: STRENGTH: 50 MG/ML
     Dates: start: 20240319, end: 20240319
  7. OXALIPLATIN [Suspect]
     Active Substance: OXALIPLATIN
     Indication: Metastases to peritoneum
     Dosage: STRENGTH: 5 MG/ML
     Dates: start: 20240319, end: 20240319
  8. NIVOLUMAB [Suspect]
     Active Substance: NIVOLUMAB
     Indication: Metastases to peritoneum
     Dosage: STRENGTH: 10 MG/ML
     Dates: start: 20240319, end: 20240319

REACTIONS (2)
  - Thrombocytopenia [Recovered/Resolved]
  - Atrial fibrillation [Recovered/Resolved]

NARRATIVE: CASE EVENT DATE: 20240412
